FAERS Safety Report 7768482-5 (Version None)
Quarter: 2011Q3

REPORT INFORMATION
  Report Type: 
  Country: None (occurrence: None)
  Receive Date: 20110922
  Receipt Date: 20110419
  Transmission Date: 20111222
  Serious: No
  Sender: FDA-Public Use
  Company Number: US-ASTRAZENECA-2011SE23173

PATIENT
  Sex: Female
  Weight: 68 kg

DRUGS (2)
  1. SEROQUEL XR [Suspect]
     Indication: BIPOLAR DISORDER
     Dosage: FREQUENCY WAS AT NIGHT
     Route: 048
     Dates: start: 20100801
  2. DEPAKOTE [Concomitant]

REACTIONS (8)
  - WEIGHT DECREASED [None]
  - HEADACHE [None]
  - DRUG DOSE OMISSION [None]
  - THERAPEUTIC RESPONSE UNEXPECTED [None]
  - SOMNOLENCE [None]
  - NO ADVERSE EVENT [None]
  - POOR QUALITY SLEEP [None]
  - SOMNAMBULISM [None]
